FAERS Safety Report 7634682-8 (Version None)
Quarter: 2011Q3

REPORT INFORMATION
  Report Type: 
  Country: None (occurrence: None)
  Receive Date: 20110725
  Receipt Date: 20081017
  Transmission Date: 20111222
  Serious: Yes (Death, Other)
  Sender: FDA-Public Use
  Company Number: US-BAYER-200836286NA

PATIENT
  Age: 71 Year
  Sex: Male
  Weight: 83.8 kg

DRUGS (32)
  1. AMIODARONE HCL [Concomitant]
     Dosage: 900 MG AT 33 CC/HOUR
     Route: 042
     Dates: start: 20031215
  2. CLONIDINE [Concomitant]
     Dosage: 0.1 MG, AS NEEDED
     Route: 048
     Dates: start: 20031209
  3. PAPAVERINE [Concomitant]
     Dosage: 60 MG, UNK
     Route: 042
     Dates: start: 20031215
  4. EPINEPHRINE [Concomitant]
     Dosage: 2 MG / 250 CC
     Route: 042
     Dates: start: 20031215
  5. DOPAMINE HCL [Concomitant]
     Dosage: 200 MG / 250 CC
     Route: 042
     Dates: start: 20031215
  6. MILRINONE [Concomitant]
     Dosage: 0.75 MCG
     Route: 042
     Dates: start: 20031215
  7. LORTAB [Concomitant]
     Dosage: 5/500 MG / AS NEEDED
     Route: 048
     Dates: start: 20031209
  8. PREDNISONE TAB [Concomitant]
     Dosage: 40 MG, 1-2 TIMES DAILY
     Route: 048
     Dates: start: 20031209
  9. LOVENOX [Concomitant]
     Dosage: 40 MG, QD
     Route: 058
     Dates: start: 20031210
  10. TORADOL [Concomitant]
     Dosage: UNK
     Dates: start: 20030916
  11. DOBUTAMINE HCL [Concomitant]
     Dosage: UNK
     Route: 042
     Dates: start: 20031120
  12. LIPITOR [Concomitant]
     Dosage: 10 MG, QD
     Route: 048
  13. TRASYLOL [Suspect]
     Indication: PRODUCT USED FOR UNKNOWN INDICATION
     Dosage: 1 ML, ONCE
     Route: 042
     Dates: start: 20031215, end: 20031216
  14. METOPROLOL TARTRATE [Concomitant]
     Dosage: 50 MG, BID
     Route: 048
     Dates: end: 19920101
  15. THROMBIN LOCAL SOLUTION [Concomitant]
     Dosage: UNK
     Route: 042
     Dates: start: 20031215
  16. PROTAMINE SULFATE [Concomitant]
     Dosage: UNK
     Route: 042
     Dates: start: 20031215
  17. DILANTIN [Concomitant]
     Dosage: UNK
     Route: 042
     Dates: start: 20031215
  18. AMIODARONE HCL [Concomitant]
     Dosage: 400 MG, BID
     Route: 048
     Dates: start: 20031209
  19. AMIODARONE HCL [Concomitant]
     Dosage: 150 MG OVER TEN MINUTES
     Route: 042
     Dates: start: 20031215
  20. TRASYLOL [Suspect]
     Dosage: 500000 U, INFUSION
     Route: 042
     Dates: start: 20031216
  21. CEFAZOLIN [Concomitant]
     Dosage: 1 G, UNK
     Route: 042
     Dates: start: 20031215
  22. TRASYLOL [Suspect]
     Dosage: 50 CC INFUSION
     Route: 042
     Dates: start: 20031215, end: 20031216
  23. DILANTIN [Concomitant]
     Dosage: 100 MG, BID
     Route: 048
     Dates: end: 19880101
  24. NITROGLYCERIN [Concomitant]
     Dosage: 50 MG / 250 CC
     Route: 042
     Dates: start: 20031215
  25. SOLU-MEDROL [Concomitant]
     Dosage: 125 MG
     Route: 042
     Dates: start: 20031215
  26. LABETALOL HCL [Concomitant]
     Dosage: UNK
     Dates: start: 20031105
  27. VISIPAQUE [Concomitant]
     Indication: CATHETERISATION CARDIAC
     Dosage: 150 CC
     Dates: start: 20031209
  28. TRASYLOL [Suspect]
     Dosage: 200 CC, LOADING DOSE
     Route: 042
     Dates: start: 20031215, end: 20031216
  29. TRASYLOL [Suspect]
     Dosage: 1000000 U, LOADING DOSE
     Route: 042
     Dates: start: 20031216
  30. NITROGLYCERIN [Concomitant]
     Dosage: 0.4 MG, AS NEEDED
     Route: 060
     Dates: start: 20031209
  31. SOLU-MEDROL [Concomitant]
     Dosage: 125 MG, UNK
     Dates: start: 20031212
  32. HEPARIN [Concomitant]
     Dosage: 2000 UNITS/ 250 CC
     Route: 042
     Dates: start: 20031215

REACTIONS (13)
  - PAIN [None]
  - RENAL FAILURE [None]
  - EMOTIONAL DISTRESS [None]
  - STRESS [None]
  - DEATH [None]
  - UNEVALUABLE EVENT [None]
  - FEAR [None]
  - ANHEDONIA [None]
  - INJURY [None]
  - RENAL IMPAIRMENT [None]
  - RENAL INJURY [None]
  - ANXIETY [None]
  - MULTI-ORGAN FAILURE [None]
